FAERS Safety Report 10050767 (Version 1)
Quarter: 2014Q2

REPORT INFORMATION
  Report Type: Spontaneous
  Country: US (occurrence: US)
  Receive Date: 20140401
  Receipt Date: 20140401
  Transmission Date: 20141212
  Serious: Yes (Other)
  Sender: FDA-Public Use
  Company Number: US-JNJFOC-20140315140

PATIENT
  Sex: Female
  Weight: 106.6 kg

DRUGS (3)
  1. RISPERDAL CONSTA [Suspect]
     Indication: SCHIZOPHRENIA
     Route: 030
     Dates: start: 2005
  2. DEPAKOTE [Concomitant]
     Route: 048
     Dates: start: 2005
  3. SEROQUEL [Concomitant]
     Route: 048
     Dates: start: 2005

REACTIONS (3)
  - Neoplasm malignant [Unknown]
  - Sinusitis [Recovering/Resolving]
  - Cough [Recovering/Resolving]
